FAERS Safety Report 4840280-1 (Version None)
Quarter: 2005Q4

REPORT INFORMATION
  Report Type: 
  Country: None (occurrence: None)
  Receive Date: 20051129
  Receipt Date: 20051004
  Transmission Date: 20060501
  Serious: Yes (Hospitalization, Disabling)
  Sender: FDA-Public Use
  Company Number: US-MERCK-0510USA03043

PATIENT
  Age: 54 Year
  Sex: Male
  Weight: 84 kg

DRUGS (6)
  1. PEPCID [Concomitant]
     Route: 065
  2. ZESTRIL [Concomitant]
     Route: 065
  3. VIOXX [Suspect]
     Indication: ARTHRITIS
     Route: 048
     Dates: start: 19991201, end: 20010314
  4. PERCOCET [Concomitant]
     Route: 065
  5. OXYCONTIN [Concomitant]
     Route: 065
  6. NEURONTIN [Concomitant]
     Route: 065

REACTIONS (8)
  - ANGINA UNSTABLE [None]
  - ARTERIAL RUPTURE [None]
  - BACK INJURY [None]
  - CORONARY ARTERY DISEASE [None]
  - DEPRESSION [None]
  - HEADACHE [None]
  - JOINT INJURY [None]
  - MYOCARDIAL INFARCTION [None]
